FAERS Safety Report 25040160 (Version 1)
Quarter: 2025Q1

REPORT INFORMATION
  Report Type: Spontaneous
  Country: RO (occurrence: RO)
  Receive Date: 20250305
  Receipt Date: 20250305
  Transmission Date: 20250408
  Serious: Yes (Other)
  Sender: CELLTRION
  Company Number: RO-PFIZER INC-202500043447

PATIENT

DRUGS (3)
  1. INFLIXIMAB [Suspect]
     Active Substance: INFLIXIMAB
     Indication: Colitis ulcerative
  2. INFLIXIMAB [Suspect]
     Active Substance: INFLIXIMAB
  3. AZATHIOPRINE [Concomitant]
     Active Substance: AZATHIOPRINE
     Indication: Colitis ulcerative

REACTIONS (6)
  - Colitis ulcerative [Unknown]
  - Loss of therapeutic response [Unknown]
  - Fatigue [Unknown]
  - Heart rate increased [Unknown]
  - Pallor [Unknown]
  - Off label use [Unknown]
